FAERS Safety Report 4790330-6 (Version None)
Quarter: 2005Q4

REPORT INFORMATION
  Report Type: 
  Country: None (occurrence: None)
  Receive Date: 20051005
  Receipt Date: 20050927
  Transmission Date: 20060501
  Serious: Yes (Other)
  Sender: FDA-Public Use
  Company Number: 27549

PATIENT
  Age: 7 Year
  Sex: Male

DRUGS (2)
  1. ALDARA [Suspect]
     Indication: MOLLUSCUM CONTAGIOSUM
     Dosage: 1.5 SACHET, 5 IN 1 WEEK(S), TOPICAL
     Route: 061
     Dates: start: 20050310, end: 20050423
  2. RANITIDINE [Suspect]

REACTIONS (2)
  - DIABETES MELLITUS INSULIN-DEPENDENT [None]
  - STOMACH DISCOMFORT [None]
